FAERS Safety Report 23391343 (Version 2)
Quarter: 2024Q1

REPORT INFORMATION
  Report Type: Report from Study
  Country: US (occurrence: US)
  Receive Date: 20240111
  Receipt Date: 20240115
  Transmission Date: 20240410
  Serious: Yes (Death)
  Sender: FDA-Public Use
  Company Number: US-DSJP-DSU-2024-100852

PATIENT
  Age: 70 Year
  Sex: Male

DRUGS (1)
  1. ENHERTU [Suspect]
     Active Substance: FAM-TRASTUZUMAB DERUXTECAN-NXKI
     Indication: Transitional cell carcinoma metastatic
     Dosage: UNK, ONCE EVERY 3 WK
     Route: 042
     Dates: start: 20231213

REACTIONS (4)
  - Pancreatic carcinoma metastatic [Fatal]
  - Abdominal distension [Unknown]
  - Off label use [Unknown]
  - Decreased appetite [Unknown]

NARRATIVE: CASE EVENT DATE: 20240103
